FAERS Safety Report 5752990-2 (Version None)
Quarter: 2008Q2

REPORT INFORMATION
  Report Type: 
  Country: None (occurrence: None)
  Receive Date: 20080527
  Receipt Date: 20080514
  Transmission Date: 20081010
  Serious: Yes (Death, Hospitalization)
  Sender: FDA-Public Use
  Company Number: 2008MP000091

PATIENT
  Age: 41 Year
  Sex: Male

DRUGS (2)
  1. GLIADEL [Suspect]
     Indication: GLIOBLASTOMA MULTIFORME
     Dosage: 61.6 MG,1X;ICER
     Dates: start: 20080201
  2. TEMOZOLOMIDE [Concomitant]

REACTIONS (3)
  - BRAIN OEDEMA [None]
  - NEUROLOGICAL SYMPTOM [None]
  - TREATMENT FAILURE [None]
